FAERS Safety Report 21822166 (Version 20)
Quarter: 2025Q2

REPORT INFORMATION
  Report Type: Report from Study
  Country: RU (occurrence: RU)
  Receive Date: 20230105
  Receipt Date: 20250620
  Transmission Date: 20250717
  Serious: Yes (Hospitalization, Other)
  Sender: TAKEDA
  Company Number: RU-TAKEDA-2022TUS100803

PATIENT
  Age: 11 Year
  Sex: Male

DRUGS (2)
  1. IDURSULFASE [Suspect]
     Active Substance: IDURSULFASE
     Indication: Mucopolysaccharidosis II
  2. IDURSULFASE [Suspect]
     Active Substance: IDURSULFASE

REACTIONS (13)
  - Nasopharyngitis [Recovered/Resolved]
  - Hydrocephalus [Unknown]
  - Body temperature increased [Unknown]
  - Tracheostomy malfunction [Unknown]
  - Salivary hypersecretion [Not Recovered/Not Resolved]
  - Secretion discharge [Recovered/Resolved]
  - Tracheostomy infection [Unknown]
  - Seizure [Recovering/Resolving]
  - Pyrexia [Recovered/Resolved]
  - General physical health deterioration [Unknown]
  - Dyspnoea [Unknown]
  - Product availability issue [Unknown]
  - Inflammation [Unknown]

NARRATIVE: CASE EVENT DATE: 20241001
